FAERS Safety Report 16245065 (Version 3)
Quarter: 2019Q2

REPORT INFORMATION
  Report Type: Report from Study
  Country: US (occurrence: US)
  Receive Date: 20190426
  Receipt Date: 20190604
  Transmission Date: 20190711
  Serious: Yes (Death, Hospitalization)
  Sender: FDA-Public Use
  Company Number: US-PUMA BIOTECHNOLOGY, LTD.-2019US003929

PATIENT

DRUGS (2)
  1. NAVELBINE [Concomitant]
     Active Substance: VINORELBINE TARTRATE
     Indication: PRODUCT USED FOR UNKNOWN INDICATION
     Dosage: 10 MG/ML
  2. NERLYNX [Suspect]
     Active Substance: NERATINIB
     Indication: BREAST CANCER FEMALE
     Dosage: 240 MG (6 TABLETS), DAILY
     Route: 048
     Dates: start: 20180730, end: 201905

REACTIONS (6)
  - Death [Fatal]
  - Fatigue [Unknown]
  - Headache [Unknown]
  - Metastases to central nervous system [Unknown]
  - Off label use [Unknown]
  - Metastases to lung [Unknown]

NARRATIVE: CASE EVENT DATE: 2019
